FAERS Safety Report 11340816 (Version 1)
Quarter: 2015Q3

REPORT INFORMATION
  Report Type: Report from Study
  Country: GB (occurrence: GB)
  Receive Date: 20150805
  Receipt Date: 20150805
  Transmission Date: 20151125
  Serious: Yes (Hospitalization)
  Sender: FDA-Public Use
  Company Number: GB-JNJFOC-20090902237

PATIENT
  Age: 53 Year
  Sex: Female
  Weight: 53.7 kg

DRUGS (3)
  1. ABIRATERONE ACETATE [Suspect]
     Active Substance: ABIRATERONE ACETATE
     Indication: BREAST CANCER
     Dosage: 250 MG (250 MG CYCLE 1 DAY 1)
     Route: 048
     Dates: start: 20090205, end: 20090205
  2. ZOLEDRONIC ACID [Concomitant]
     Active Substance: ZOLEDRONIC ACID
     Indication: METASTASES TO BONE
     Route: 042
     Dates: start: 20081008
  3. ABIRATERONE ACETATE [Suspect]
     Active Substance: ABIRATERONE ACETATE
     Indication: BREAST CANCER
     Dosage: CYCLE 3, DAY 1
     Route: 048
     Dates: start: 20090402, end: 20090402

REACTIONS (2)
  - Neutropenia [Unknown]
  - Left ventricular dysfunction [Recovered/Resolved with Sequelae]

NARRATIVE: CASE EVENT DATE: 20090402
